FAERS Safety Report 16964947 (Version 2)
Quarter: 2019Q4

REPORT INFORMATION
  Report Type: Report from Study
  Country: CA (occurrence: CA)
  Receive Date: 20191028
  Receipt Date: 20191129
  Transmission Date: 20200122
  Serious: Yes (Other)
  Sender: FDA-Public Use
  Company Number: CA-GLAXOSMITHKLINE-CA2019AMR193668

PATIENT
  Sex: Male

DRUGS (1)
  1. MEPOLIZUMAB [Suspect]
     Active Substance: MEPOLIZUMAB
     Indication: ASTHMA
     Dosage: 100 MG, Z(MONTHLY)
     Route: 042
     Dates: start: 20190731

REACTIONS (7)
  - Asthmatic crisis [Unknown]
  - Cough [Unknown]
  - Chest injury [Unknown]
  - Infection [Unknown]
  - Rib fracture [Unknown]
  - Product dose omission [Unknown]
  - Pneumonia [Not Recovered/Not Resolved]
